FAERS Safety Report 10666383 (Version 1)
Quarter: 2014Q4

REPORT INFORMATION
  Report Type: Spontaneous
  Country: US (occurrence: US)
  Receive Date: 20141220
  Receipt Date: 20141220
  Transmission Date: 20150529
  Serious: No
  Sender: FDA-Public Use
  Company Number: US-BAUSCH-SYM-2014-21335

PATIENT
  Age: 61 Year
  Sex: Female

DRUGS (5)
  1. KLONOPIN [Concomitant]
     Active Substance: CLONAZEPAM
     Indication: PRODUCT USED FOR UNKNOWN INDICATION
  2. XENAZINE [Suspect]
     Active Substance: TETRABENAZINE
     Indication: EXTRAPYRAMIDAL DISORDER
     Dosage: 1 TABLET IN THE MORNING AND 1 TABLET IN THE EVENING
     Route: 048
     Dates: start: 20131123
  3. CYMBALTA [Concomitant]
     Active Substance: DULOXETINE HYDROCHLORIDE
     Indication: PRODUCT USED FOR UNKNOWN INDICATION
  4. XENAZINE [Suspect]
     Active Substance: TETRABENAZINE
     Indication: MOVEMENT DISORDER
  5. RESTORIL [Concomitant]
     Active Substance: TEMAZEPAM
     Indication: PRODUCT USED FOR UNKNOWN INDICATION

REACTIONS (1)
  - Memory impairment [Unknown]

NARRATIVE: CASE EVENT DATE: 20140520
